FAERS Safety Report 8030691-8 (Version None)
Quarter: 2012Q1

REPORT INFORMATION
  Report Type: 
  Country: None (occurrence: None)
  Receive Date: 20120109
  Receipt Date: 20120105
  Transmission Date: 20120608
  Serious: Yes (Death, Hospitalization)
  Sender: FDA-Public Use
  Company Number: CH-ROCHE-1023370

PATIENT
  Age: 71 Year
  Sex: Female

DRUGS (8)
  1. LEVOTHYROXINE SODIUM [Concomitant]
     Route: 048
  2. PEMETREXED DISODIUM [Suspect]
     Indication: NON-SMALL CELL LUNG CANCER
     Route: 042
     Dates: start: 20111111
  3. PERINDOPRIL [Concomitant]
     Dosage: TDD 1BL
     Route: 048
  4. CISPLATIN [Suspect]
     Indication: NON-SMALL CELL LUNG CANCER
     Route: 042
     Dates: start: 20111111
  5. MORPHINE [Concomitant]
     Dosage: TDD 30-50-
     Route: 048
  6. AVASTIN [Suspect]
     Indication: NON-SMALL CELL LUNG CANCER
     Route: 042
     Dates: start: 20111111
  7. AMLODIPINE [Concomitant]
     Dosage: TDD 1BL
     Route: 048
  8. ACETAMINOPHEN [Concomitant]
     Dosage: TDD AGR
     Route: 048

REACTIONS (1)
  - FATIGUE [None]
